FAERS Safety Report 7061990-4 (Version None)
Quarter: 2010Q4

REPORT INFORMATION
  Report Type: 
  Country: None (occurrence: None)
  Receive Date: 20101026
  Receipt Date: 20101018
  Transmission Date: 20110411
  Serious: Yes (Hospitalization)
  Sender: FDA-Public Use
  Company Number: US-SANOFI-AVENTIS-2010SA063960

PATIENT
  Age: 84 Year
  Sex: Female

DRUGS (2)
  1. INSULIN GLARGINE [Suspect]
     Dosage: 17 UNITS IN AM AND 10 UNITS IN PM
     Route: 058
     Dates: start: 20101001
  2. SOLOSTAR [Suspect]
     Dates: start: 20101001

REACTIONS (1)
  - PLEURAL EFFUSION [None]
